FAERS Safety Report 18631856 (Version 7)
Quarter: 2022Q4

REPORT INFORMATION
  Report Type: Report from Study
  Country: US (occurrence: US)
  Receive Date: 20201218
  Receipt Date: 20221124
  Transmission Date: 20230112
  Serious: Yes (Death, Hospitalization, Other)
  Sender: FDA-Public Use
  Company Number: US-ACADIA PHARMACEUTICALS INC.-ACA-2020-PIM-003816

PATIENT
  Age: 58 Year
  Sex: Male
  Weight: 101 kg

DRUGS (6)
  1. NUPLAZID [Suspect]
     Active Substance: PIMAVANSERIN TARTRATE
     Indication: Parkinson^s disease psychosis
     Dosage: 34 MILLIGRAM, QD
     Route: 048
     Dates: start: 201910
  2. NUPLAZID [Suspect]
     Active Substance: PIMAVANSERIN TARTRATE
     Indication: Delusion
     Dosage: 34 MILLIGRAM, BID
     Route: 048
     Dates: start: 202007
  3. NUPLAZID [Suspect]
     Active Substance: PIMAVANSERIN TARTRATE
     Indication: Hallucination
     Dosage: 78 MILLIGRAM (34MG CAPSULE BID + 10MG TABLET QD)
     Route: 048
  4. NUPLAZID [Suspect]
     Active Substance: PIMAVANSERIN TARTRATE
     Dosage: 34 MILLIGRAM, BID
     Route: 048
  5. NUPLAZID [Suspect]
     Active Substance: PIMAVANSERIN TARTRATE
     Indication: Hallucination
     Dosage: 78 MILLIGRAM (34MG CAPSULE BID + 10MG TABLET QD)
     Route: 048
  6. NUPLAZID [Suspect]
     Active Substance: PIMAVANSERIN TARTRATE
     Indication: Parkinson^s disease

REACTIONS (10)
  - Death [Fatal]
  - COVID-19 [Recovered/Resolved]
  - Pain in extremity [Unknown]
  - Product dose omission issue [Unknown]
  - Product dose omission issue [Not Recovered/Not Resolved]
  - Adverse drug reaction [Unknown]
  - Inappropriate schedule of product administration [Unknown]
  - Hallucination [Unknown]
  - Overdose [Unknown]
  - Overdose [Unknown]

NARRATIVE: CASE EVENT DATE: 20200701
